FAERS Safety Report 24220741 (Version 2)
Quarter: 2024Q3

REPORT INFORMATION
  Report Type: Spontaneous
  Country: JP (occurrence: JP)
  Receive Date: 20240818
  Receipt Date: 20240930
  Transmission Date: 20241016
  Serious: Yes (Other)
  Sender: CSL BEHRING
  Company Number: JP-BEH-2024177008

PATIENT
  Age: 55 Year
  Sex: Male
  Weight: 68.2 kg

DRUGS (3)
  1. HIZENTRA [Suspect]
     Active Substance: HUMAN IMMUNOGLOBULIN G
     Indication: Chronic inflammatory demyelinating polyradiculoneuropathy
     Dosage: 16 G, QW
     Route: 058
     Dates: start: 20220525
  2. TACROLIMUS [Concomitant]
     Active Substance: TACROLIMUS
     Indication: Chronic inflammatory demyelinating polyradiculoneuropathy
     Dosage: 4.5 MG, EVERY DAY
     Route: 048
     Dates: start: 20220517
  3. PREDONINE [Concomitant]
     Active Substance: PREDNISOLONE
     Indication: Chronic inflammatory demyelinating polyradiculoneuropathy
     Dosage: 2.5 MG, EVERY DAY
     Route: 048
     Dates: start: 20220517

REACTIONS (2)
  - Chronic inflammatory demyelinating polyradiculoneuropathy [Recovered/Resolved]
  - Muscular weakness [Recovered/Resolved]

NARRATIVE: CASE EVENT DATE: 20240801
